FAERS Safety Report 19740041 (Version 1)
Quarter: 2021Q3

REPORT INFORMATION
  Report Type: Spontaneous
  Country: HU (occurrence: HU)
  Receive Date: 20210824
  Receipt Date: 20210824
  Transmission Date: 20211014
  Serious: Yes (Other)
  Sender: FDA-Public Use
  Company Number: HU-MYLANLABS-2021M1053787

PATIENT
  Age: 67 Year
  Sex: Male

DRUGS (3)
  1. METFORMIN [Suspect]
     Active Substance: METFORMIN HYDROCHLORIDE
     Indication: TYPE 2 DIABETES MELLITUS
     Dosage: 100 MILLIGRAM, 2X (100 MG, 2X)
     Route: 065
     Dates: start: 2011
  2. DAPAGLIFLOZIN. [Concomitant]
     Active Substance: DAPAGLIFLOZIN
     Indication: TYPE 2 DIABETES MELLITUS
     Dosage: 10 MILLIGRAM, QD (10 MG, 1X)
     Route: 065
  3. METFORMIN HYDROCHLORIDE W/VILDAGLIPTIN [Suspect]
     Active Substance: METFORMIN HYDROCHLORIDE\VILDAGLIPTIN
     Indication: TYPE 2 DIABETES MELLITUS
     Dosage: 2 DOSAGE FORM, QD (1 DF, BID)
     Route: 065
     Dates: start: 2015

REACTIONS (4)
  - Acute myocardial infarction [Unknown]
  - Glycosylated haemoglobin increased [Unknown]
  - Hypertension [Unknown]
  - Obesity [Unknown]

NARRATIVE: CASE EVENT DATE: 2015
